FAERS Safety Report 11158841 (Version 1)
Quarter: 2015Q2

REPORT INFORMATION
  Report Type: Report from Study
  Country: US (occurrence: None)
  Receive Date: 20150520
  Receipt Date: 20150520
  Transmission Date: 20150821
  Serious: Yes (Hospitalization, Other)
  Sender: FDA-Public Use
  Company Number: 2014FE02314

PATIENT
  Age: 2 Year
  Sex: Male

DRUGS (1)
  1. DDAVP [Suspect]
     Active Substance: DESMOPRESSIN ACETATE
     Indication: CONGENITAL THROMBOCYTE DISORDER
     Route: 042

REACTIONS (2)
  - Hyponatraemia [None]
  - Generalised tonic-clonic seizure [None]
